FAERS Safety Report 5163690-4 (Version None)
Quarter: 2006Q4

REPORT INFORMATION
  Report Type: 
  Country: None (occurrence: None)
  Receive Date: 20061204
  Receipt Date: 20010404
  Transmission Date: 20070319
  Serious: Yes (Hospitalization)
  Sender: FDA-Public Use
  Company Number: FR-GLAXOSMITHKLINE-B0103424A

PATIENT
  Age: 1 Day
  Sex: Male
  Weight: 3.6 kg

DRUGS (5)
  1. EPIVIR [Suspect]
     Indication: ANTIVIRAL PROPHYLAXIS
     Route: 048
     Dates: start: 19970530, end: 19970711
  2. RETROVIR [Suspect]
     Indication: ANTIVIRAL PROPHYLAXIS
     Route: 048
     Dates: start: 19970530, end: 19970711
  3. RETROVIR [Suspect]
     Route: 042
     Dates: start: 19970530, end: 19970530
  4. EPIVIR [Suspect]
     Indication: HIV INFECTION
     Route: 048
     Dates: start: 19970409, end: 19970602
  5. RETROVIR [Suspect]
     Indication: HIV INFECTION
     Route: 048
     Dates: start: 19970409, end: 19970602

REACTIONS (6)
  - ABNORMAL BEHAVIOUR [None]
  - ANAEMIA [None]
  - DRUG EXPOSURE DURING PREGNANCY [None]
  - NEONATAL DISORDER [None]
  - NEUTROPENIA [None]
  - STRABISMUS [None]
